FAERS Safety Report 6565688-8 (Version None)
Quarter: 2010Q1

REPORT INFORMATION
  Report Type: 
  Country: None (occurrence: None)
  Receive Date: 20100201
  Receipt Date: 20100127
  Transmission Date: 20100710
  Serious: Yes (Death, Hospitalization, Other)
  Sender: FDA-Public Use
  Company Number: US-ABBOTT-10P-163-0622757-00

PATIENT
  Age: 60 Year
  Sex: Male

DRUGS (3)
  1. HUMIRA [Suspect]
     Indication: CROHN'S DISEASE
     Dates: end: 20090101
  2. HUMIRA [Suspect]
     Dosage: ONE DOSE
  3. HUMIRA [Suspect]
     Dosage: ONE DOSE

REACTIONS (5)
  - ABDOMINAL ABSCESS [None]
  - ABDOMINAL PAIN [None]
  - GALLBLADDER DISORDER [None]
  - INFECTION [None]
  - PANCREATIC NECROSIS [None]
